FAERS Safety Report 7232083-8 (Version None)
Quarter: 2011Q1

REPORT INFORMATION
  Report Type: 
  Country: None (occurrence: None)
  Receive Date: 20110118
  Receipt Date: 20110104
  Transmission Date: 20110831
  Serious: Yes (Hospitalization)
  Sender: FDA-Public Use
  Company Number: ES-ELI_LILLY_AND_COMPANY-ES201101000487

PATIENT
  Sex: Male
  Weight: 77 kg

DRUGS (9)
  1. ATORVASTATIN CALCIUM [Concomitant]
  2. NECITUMUMAB (11F8) (LY3012211) [Suspect]
     Indication: NON-SMALL CELL LUNG CANCER
     Dosage: 800 MG, OTHER
     Route: 042
     Dates: start: 20101014
  3. GEMCITABINE HCL [Suspect]
     Indication: NON-SMALL CELL LUNG CANCER
     Dosage: 2348 MG, OTHER
     Route: 042
     Dates: start: 20101014
  4. ADIRO [Concomitant]
     Dosage: 100 MG, DAILY (1/D)
  5. COLCHICINE [Concomitant]
  6. CISPLATIN [Suspect]
     Indication: NON-SMALL CELL LUNG CANCER
     Dosage: 141 MG, OTHER
     Route: 042
     Dates: start: 20101014
  7. COAPROVEL [Concomitant]
  8. AVANDIA [Concomitant]
  9. JANUVIA [Concomitant]

REACTIONS (1)
  - HAEMOPTYSIS [None]
